FAERS Safety Report 5256992-4 (Version None)
Quarter: 2007Q1

REPORT INFORMATION
  Report Type: 
  Country: None (occurrence: None)
  Receive Date: 20070307
  Receipt Date: 20070228
  Transmission Date: 20070707
  Serious: Yes (Hospitalization)
  Sender: FDA-Public Use
  Company Number: 2006UW07969

PATIENT
  Sex: Female
  Weight: 65.9 kg

DRUGS (10)
  1. SEROQUEL [Suspect]
     Indication: SCHIZOPHRENIA
     Dosage: 25 MG - 100 MG
     Route: 048
     Dates: start: 19990101, end: 20050101
  2. SEROQUEL [Suspect]
     Indication: BIPOLAR DISORDER
     Dosage: 25 MG - 100 MG
     Route: 048
     Dates: start: 19990101, end: 20050101
  3. SEROQUEL [Suspect]
     Indication: DEPRESSION
     Dosage: 25 MG - 100 MG
     Route: 048
     Dates: start: 19990101, end: 20050101
  4. SEROQUEL [Suspect]
     Route: 048
     Dates: start: 20001101, end: 20050701
  5. SEROQUEL [Suspect]
     Route: 048
     Dates: start: 20001101, end: 20050701
  6. SEROQUEL [Suspect]
     Route: 048
     Dates: start: 20001101, end: 20050701
  7. ZYPREXA [Suspect]
  8. ABILIFY [Concomitant]
  9. GEODON [Concomitant]
  10. RISPERDAL [Concomitant]

REACTIONS (3)
  - ANXIETY [None]
  - DIABETES MELLITUS [None]
  - HYPERGLYCAEMIA [None]
